FAERS Safety Report 22610761 (Version 1)
Quarter: 2023Q2

REPORT INFORMATION
  Report Type: Spontaneous
  Country: CN (occurrence: CN)
  Receive Date: 20230616
  Receipt Date: 20230616
  Transmission Date: 20230721
  Serious: Yes (Hospitalization, Other)
  Sender: FDA-Public Use
  Company Number: CN-009507513-2306CHN006433

PATIENT
  Age: 61 Year
  Sex: Female
  Weight: 43.5 kg

DRUGS (3)
  1. CILASTATIN SODIUM\IMIPENEM [Suspect]
     Active Substance: CILASTATIN SODIUM\IMIPENEM
     Indication: Anti-infective therapy
     Dosage: 1G, Q8H
     Route: 041
     Dates: start: 20230528, end: 20230603
  2. ULINASTATIN [Suspect]
     Active Substance: ULINASTATIN
     Indication: Adjuvant therapy
     Dosage: 100,000U, TID
     Route: 041
     Dates: start: 20230528, end: 20230530
  3. ALDESLEUKIN [Suspect]
     Active Substance: ALDESLEUKIN
     Indication: White blood cell count decreased
     Dosage: 1 MILLION IU TIW
     Route: 058
     Dates: start: 20230603, end: 20230606

REACTIONS (5)
  - White blood cell count decreased [Recovering/Resolving]
  - Red blood cell count decreased [Recovering/Resolving]
  - Platelet count decreased [Recovering/Resolving]
  - Anaemia [Unknown]
  - Drug ineffective [Unknown]

NARRATIVE: CASE EVENT DATE: 20230501
